FAERS Safety Report 20728036 (Version 1)
Quarter: 2022Q2

REPORT INFORMATION
  Report Type: Spontaneous
  Country: GB (occurrence: GB)
  Receive Date: 20220420
  Receipt Date: 20220420
  Transmission Date: 20220721
  Serious: Yes (Disabling)
  Sender: FDA-Public Use
  Company Number: None

PATIENT

DRUGS (9)
  1. DONEPEZIL [Suspect]
     Active Substance: DONEPEZIL
     Indication: Ill-defined disorder
     Dosage: UNK
     Route: 065
     Dates: start: 20220404
  2. CALCIUM CARBONATE [Concomitant]
     Active Substance: CALCIUM CARBONATE
     Indication: Ill-defined disorder
     Dosage: UNK, TAKE ON IN THE MORNING AND ONE IN THE EVENING
     Route: 065
     Dates: start: 20210513, end: 20220131
  3. BROMFENAC [Concomitant]
     Active Substance: BROMFENAC SODIUM
     Indication: Ill-defined disorder
     Dosage: UNK, ONE DROP FOUR TIMES A DAY INTO THE LEFT EYE
     Route: 065
     Dates: start: 20210301
  4. DEXAMETHASONE [Concomitant]
     Active Substance: DEXAMETHASONE
     Indication: Ill-defined disorder
     Dosage: UNK, ONE DROP EVERY 4 HRS INTO LEFT EYE
     Route: 065
     Dates: start: 20210301
  5. DONEPEZIL HYDROCHLORIDE [Concomitant]
     Active Substance: DONEPEZIL HYDROCHLORIDE
     Indication: Ill-defined disorder
     Dosage: UNK, TAKE ONE IN THE MORNING
     Route: 065
     Dates: start: 20211201, end: 20220131
  6. FELODIPINE [Concomitant]
     Active Substance: FELODIPINE
     Indication: Ill-defined disorder
     Dosage: UNK, ONE TO BE TAKEN IN THE MORNING
     Route: 065
     Dates: start: 20210301
  7. OMEPRAZOLE [Concomitant]
     Active Substance: OMEPRAZOLE
     Indication: Ill-defined disorder
     Dosage: UNK, TAKE ON IN THE MORNING AND ONE IN THE EVENING
     Route: 065
     Dates: start: 20210301
  8. ACETAMINOPHEN [Concomitant]
     Active Substance: ACETAMINOPHEN
     Indication: Ill-defined disorder
     Dosage: UNK, 2 UPTO TDS
     Route: 065
  9. URSODIOL [Concomitant]
     Active Substance: URSODIOL
     Indication: Ill-defined disorder
     Dosage: UNK, TAKE ONE IN THE MORNING, ONE AT MIDNIGHT AND ONE
     Route: 065
     Dates: start: 20210301, end: 20220321

REACTIONS (1)
  - Adverse drug reaction [Recovered/Resolved]

NARRATIVE: CASE EVENT DATE: 20220404
